FAERS Safety Report 18591111 (Version 2)
Quarter: 2020Q4

REPORT INFORMATION
  Report Type: Spontaneous
  Country: FR (occurrence: FR)
  Receive Date: 20201208
  Receipt Date: 20201216
  Transmission Date: 20210114
  Serious: Yes (Death)
  Sender: FDA-Public Use
  Company Number: FR-PFIZER INC-2020480992

PATIENT
  Age: 86 Year
  Sex: Male

DRUGS (1)
  1. VYNDAQEL [Suspect]
     Active Substance: TAFAMIDIS MEGLUMINE
     Dosage: 20 MG, DAILY
     Dates: end: 20201202

REACTIONS (1)
  - Death [Fatal]

NARRATIVE: CASE EVENT DATE: 202012
